FAERS Safety Report 24625791 (Version 1)
Quarter: 2024Q4

REPORT INFORMATION
  Report Type: Spontaneous
  Country: US (occurrence: US)
  Receive Date: 20241115
  Receipt Date: 20241115
  Transmission Date: 20250114
  Serious: No
  Sender: ANI
  Company Number: US-ANIPHARMA-2024-US-046304

PATIENT
  Age: 70 Year
  Sex: Male
  Weight: 73.94 kg

DRUGS (1)
  1. CORTICOTROPIN [Suspect]
     Active Substance: CORTICOTROPIN
     Indication: Product used for unknown indication
     Dosage: EVERY 72 HOURS
     Route: 030
     Dates: start: 20240805, end: 20240823

REACTIONS (2)
  - Peripheral swelling [Recovered/Resolved]
  - Contraindicated product administered [Recovered/Resolved]

NARRATIVE: CASE EVENT DATE: 20240805
